FAERS Safety Report 12501807 (Version 1)
Quarter: 2016Q2

REPORT INFORMATION
  Report Type: Spontaneous
  Country: US (occurrence: US)
  Receive Date: 20160627
  Receipt Date: 20160627
  Transmission Date: 20160815
  Serious: No
  Sender: FDA-Public Use
  Company Number: US-DSJP-DSU-2015-124437

PATIENT
  Sex: Female

DRUGS (3)
  1. WELCHOL [Suspect]
     Active Substance: COLESEVELAM HYDROCHLORIDE
     Indication: COLITIS
     Dosage: 1250 MG, BID
     Route: 048
     Dates: start: 2009
  2. METHSCOPOLAMINE BROMIDE. [Concomitant]
     Active Substance: METHSCOPOLAMINE BROMIDE
     Indication: COLITIS
     Dosage: UNK
     Dates: start: 2009
  3. OTHER MEDICATIONS [Concomitant]
     Active Substance: UNSPECIFIED INGREDIENT
     Indication: PRODUCT USED FOR UNKNOWN INDICATION
     Dosage: UNK

REACTIONS (2)
  - Off label use [Not Recovered/Not Resolved]
  - No adverse event [Not Recovered/Not Resolved]

NARRATIVE: CASE EVENT DATE: 2009
